FAERS Safety Report 18236974 (Version 2)
Quarter: 2020Q4

REPORT INFORMATION
  Report Type: Spontaneous
  Country: VN (occurrence: VN)
  Receive Date: 20200907
  Receipt Date: 20201015
  Transmission Date: 20210113
  Serious: Yes (Other)
  Sender: FDA-Public Use
  Company Number: VN-ROCHE-2671226

PATIENT
  Sex: Male

DRUGS (3)
  1. XELOX [Suspect]
     Active Substance: CAPECITABINE\OXALIPLATIN
     Indication: COLON CANCER METASTATIC
     Dosage: PART OF XELOX
     Route: 065
     Dates: start: 2019
  2. AVASTIN [Suspect]
     Active Substance: BEVACIZUMAB
     Indication: COLON CANCER METASTATIC
     Route: 065
  3. XELODA [Suspect]
     Active Substance: CAPECITABINE
     Indication: COLON CANCER METASTATIC
     Route: 048
     Dates: start: 2019

REACTIONS (3)
  - Chronic kidney disease [Not Recovered/Not Resolved]
  - Chronic kidney disease [Unknown]
  - Acute kidney injury [Not Recovered/Not Resolved]
